FAERS Safety Report 10192338 (Version 1)
Quarter: 2014Q2

REPORT INFORMATION
  Report Type: Spontaneous
  Country: ES (occurrence: ES)
  Receive Date: 20140523
  Receipt Date: 20140523
  Transmission Date: 20141212
  Serious: Yes (Other)
  Sender: FDA-Public Use
  Company Number: ALCN2014ES003067

PATIENT
  Age: 32 Year
  Sex: Female
  Weight: 73 kg

DRUGS (6)
  1. OPATANOL [Suspect]
     Indication: CONJUNCTIVITIS
     Dosage: 1 GTT, TID
     Route: 047
     Dates: start: 20140509, end: 20140509
  2. HYALURONATE SODIUM [Suspect]
     Indication: CONJUNCTIVITIS
     Dosage: 1 GTT, TID
     Route: 047
     Dates: start: 20140509, end: 20140509
  3. AZITHROMYCIN DIHYDRATE [Suspect]
     Indication: CONJUNCTIVITIS
     Dosage: 1 GTT, BID
     Route: 047
     Dates: start: 20140509, end: 20140509
  4. TOBREX [Concomitant]
     Indication: CONJUNCTIVITIS
     Dosage: 1 GTT, Q4H
     Route: 047
     Dates: start: 20140430, end: 20140508
  5. COLIRCUSI GENTADEXA [Concomitant]
     Indication: CONJUNCTIVITIS
     Dosage: 1 GTT, Q4H
     Route: 047
     Dates: start: 20140331, end: 20140415
  6. DICLOFENACO LEPORI [Concomitant]
     Indication: CONJUNCTIVITIS
     Dosage: 1 GTT, TID
     Route: 047
     Dates: start: 20140430, end: 20140508

REACTIONS (8)
  - Pharyngeal oedema [Recovered/Resolved]
  - Rhinorrhoea [Recovered/Resolved]
  - Eye irritation [Recovering/Resolving]
  - Foreign body sensation in eyes [Recovered/Resolved]
  - Eyelids pruritus [Recovering/Resolving]
  - Vision blurred [Recovering/Resolving]
  - Lacrimation increased [Recovering/Resolving]
  - Eye pruritus [Recovering/Resolving]
